FAERS Safety Report 10475044 (Version 1)
Quarter: 2014Q3

REPORT INFORMATION
  Report Type: Spontaneous
  Country: US (occurrence: US)
  Receive Date: 20140925
  Receipt Date: 20140925
  Transmission Date: 20150326
  Serious: Yes (Hospitalization)
  Sender: FDA-Public Use
  Company Number: 2014SP005357

PATIENT
  Age: 15 Year
  Sex: Male

DRUGS (11)
  1. METHOTREXATE [Suspect]
     Active Substance: METHOTREXATE
     Route: 037
  2. CYCLOPHOSPHAMIDE. [Suspect]
     Active Substance: CYCLOPHOSPHAMIDE
     Route: 042
     Dates: end: 20140406
  3. DOXORUBICIN [Suspect]
     Active Substance: DOXORUBICIN
     Route: 042
     Dates: end: 20140406
  4. DEXAMETHASONE. [Suspect]
     Active Substance: DEXAMETHASONE
     Route: 048
     Dates: end: 20140406
  5. ETOPOSIDE. [Suspect]
     Active Substance: ETOPOSIDE
     Route: 042
     Dates: end: 20140316
  6. METHOTREXATE [Suspect]
     Active Substance: METHOTREXATE
     Route: 042
     Dates: end: 20140402
  7. CYTARABINE. [Suspect]
     Active Substance: CYTARABINE
     Route: 037
     Dates: end: 20140316
  8. CRIZOTINIB [Suspect]
     Active Substance: CRIZOTINIB
     Indication: ANAPLASTIC LARGE CELL LYMPHOMA T- AND NULL-CELL TYPES
     Route: 048
     Dates: end: 20140413
  9. CYTARABINE. [Suspect]
     Active Substance: CYTARABINE
  10. HYDROCORTISONE. [Suspect]
     Active Substance: HYDROCORTISONE
     Route: 037
     Dates: end: 20131206
  11. IFOSFAMIDE. [Suspect]
     Active Substance: IFOSFAMIDE
     Route: 042
     Dates: end: 20140316

REACTIONS (17)
  - Lung infection [Unknown]
  - Hypokalaemia [Recovered/Resolved]
  - Electrocardiogram QT prolonged [Recovered/Resolved]
  - Embolism [Recovered/Resolved]
  - Dyspnoea [Unknown]
  - Decreased appetite [Recovered/Resolved]
  - Lip ulceration [Recovering/Resolving]
  - Stomatitis [Recovering/Resolving]
  - Chest pain [Unknown]
  - Cough [Unknown]
  - Febrile neutropenia [Unknown]
  - Diarrhoea [Recovering/Resolving]
  - Pancytopenia [Unknown]
  - Oropharyngeal pain [Recovering/Resolving]
  - Dehydration [Unknown]
  - Hypophagia [Recovered/Resolved]
  - Hypoalbuminaemia [Unknown]

NARRATIVE: CASE EVENT DATE: 20140408
